APPROVED DRUG PRODUCT: AVEED
Active Ingredient: TESTOSTERONE UNDECANOATE
Strength: 750MG/3ML (250MG/ML)
Dosage Form/Route: INJECTABLE;INTRAMUSCULAR
Application: N022219 | Product #001
Applicant: ENDO OPERATIONS LTD
Approved: Mar 5, 2014 | RLD: Yes | RS: Yes | Type: RX

PATENTS:
Patent 8338395 | Expires: May 8, 2027
Patent 7718640 | Expires: Mar 14, 2027